FAERS Safety Report 9686829 (Version 2)
Quarter: 2014Q2

REPORT INFORMATION
  Report Type: Report from Study
  Country: JP (occurrence: JP)
  Receive Date: 20131113
  Receipt Date: 20140603
  Transmission Date: 20141212
  Serious: Yes (Death)
  Sender: FDA-Public Use
  Company Number: JP-PFIZER INC-2013322277

PATIENT
  Age: 91 Year
  Sex: Male
  Weight: 47 kg

DRUGS (9)
  1. NOVASTAN [Suspect]
     Indication: ANTICOAGULANT THERAPY
     Dosage: 10MG/H X3H (3 IN 1 WK)
     Route: 041
     Dates: start: 20130911, end: 20131030
  2. HEPARIN SODIUM [Concomitant]
     Dosage: UNK
     Route: 051
     Dates: start: 20130625
  3. REMITCH [Concomitant]
     Indication: RENAL FAILURE ACUTE
     Dosage: 2.5 UG, DAILY
     Route: 048
     Dates: start: 20130925
  4. EXACIN [Concomitant]
     Indication: RENAL FAILURE ACUTE
     Dosage: 200 MG, DAILY
     Route: 042
     Dates: start: 20131016
  5. UNASYN S [Concomitant]
     Dosage: 3 G, DAILY
     Route: 042
     Dates: start: 20131030
  6. TAKEPRON [Concomitant]
     Indication: RENAL FAILURE ACUTE
     Dosage: 15 MG, DAILY
     Route: 048
  7. MYSLEE [Concomitant]
     Indication: RENAL FAILURE ACUTE
     Dosage: 5 MG, DAILY
     Route: 048
  8. ALOSENN [Concomitant]
     Dosage: 0.5 G, DAILY
     Route: 048
  9. NESP [Concomitant]
     Indication: RENAL FAILURE ACUTE
     Dosage: 30 UG, DAILY
     Route: 042

REACTIONS (1)
  - Cardiac failure chronic [Fatal]
